FAERS Safety Report 16313196 (Version 1)
Quarter: 2019Q2

REPORT INFORMATION
  Report Type: Spontaneous
  Country: US (occurrence: US)
  Receive Date: 20190515
  Receipt Date: 20190515
  Transmission Date: 20190711
  Serious: Yes (Hospitalization)
  Sender: FDA-Public Use
  Company Number: US-SA-2019SA132242

PATIENT
  Age: 71 Year
  Sex: Female

DRUGS (4)
  1. APIDRA [Suspect]
     Active Substance: INSULIN GLULISINE
     Dosage: 20 U, QD
  2. SOLIQUA 100/33 [Suspect]
     Active Substance: INSULIN GLARGINE\LIXISENATIDE
     Indication: TYPE 2 DIABETES MELLITUS
     Dosage: 40 U, QD
     Dates: start: 20180418
  3. APIDRA [Suspect]
     Active Substance: INSULIN GLULISINE
     Dosage: 1-2 UNITS DEPENDING ON MEALS
  4. SOLIQUA 100/33 [Suspect]
     Active Substance: INSULIN GLARGINE\LIXISENATIDE
     Dosage: 48 U, QD

REACTIONS (3)
  - Cardiac disorder [Unknown]
  - Incorrect dose administered by device [Unknown]
  - Device issue [Unknown]
